FAERS Safety Report 4510274-4 (Version None)
Quarter: 2004Q4

REPORT INFORMATION
  Report Type: 
  Country: None (occurrence: None)
  Receive Date: 20041119
  Receipt Date: 20041103
  Transmission Date: 20050328
  Serious: Yes (Death)
  Sender: FDA-Public Use
  Company Number: S04-UKI-06632-01

PATIENT
  Age: 47 Year
  Sex: Female
  Weight: 51.5 kg

DRUGS (9)
  1. CIPRAMIL (CITALOPRAM HYDROBROMIDE) [Suspect]
     Indication: ANXIETY
  2. CIPRAMIL (CITALOPRAM HYDROBROMIDE) [Suspect]
     Indication: DEPRESSION
  3. CIPRAMIL (CITALOPRAM HYDROBROMIDE) [Suspect]
     Indication: ANXIETY
     Dosage: 40 MG QD PO
     Route: 048
     Dates: start: 20040514
  4. CIPRAMIL (CITALOPRAM HYDROBROMIDE) [Suspect]
     Indication: DEPRESSION
     Dosage: 40 MG QD PO
     Route: 048
     Dates: start: 20040514
  5. CIPRAMIL (CITALOPRAM HYDROBROMIDE) [Suspect]
     Indication: ANXIETY
     Dosage: 20 MG QD PO
     Route: 048
     Dates: start: 20040420, end: 20040514
  6. CIPRAMIL (CITALOPRAM HYDROBROMIDE) [Suspect]
     Indication: DEPRESSION
     Dosage: 20 MG QD PO
     Route: 048
     Dates: start: 20040420, end: 20040514
  7. ETHANOL [Suspect]
  8. ZIMOVANE (ZOPICLONE) [Concomitant]
  9. DIAZEPAM [Concomitant]

REACTIONS (6)
  - BLOOD ALCOHOL INCREASED [None]
  - DRUG TOXICITY [None]
  - MALAISE [None]
  - OVERDOSE [None]
  - PULMONARY OEDEMA [None]
  - RENAL CYST [None]
